FAERS Safety Report 15061038 (Version 1)
Quarter: 2018Q3

REPORT INFORMATION
  Report Type: Spontaneous
  Country: EE (occurrence: EE)
  Receive Date: 20180625
  Receipt Date: 20180625
  Transmission Date: 20181010
  Serious: Yes (Other)
  Sender: FDA-Public Use
  Company Number: EE-PFIZER INC-2018253599

PATIENT
  Age: 80 Year
  Sex: Female

DRUGS (8)
  1. IMDUR [Concomitant]
     Active Substance: ISOSORBIDE MONONITRATE
     Dosage: 500MG 1X1
  2. MICARDISPLUS [Concomitant]
     Active Substance: HYDROCHLOROTHIAZIDE\TELMISARTAN
     Dosage: [TELMISARTAN 80 MG]/[HYRDOCHLOROTHIAZIDE 12.5 MG] 1X1
  3. AMLODIPINE [Concomitant]
     Active Substance: AMLODIPINE BESYLATE
     Dosage: 10 MG, PER DAY
  4. BETALOC ZOK [Concomitant]
     Active Substance: METOPROLOL SUCCINATE
     Dosage: 50MG 1X1
  5. HJERTEMAGNYL /00002701/ [Concomitant]
     Active Substance: ASPIRIN
     Dosage: 75MG 1X1
  6. NEURONTIN [Suspect]
     Active Substance: GABAPENTIN
     Dosage: 300 MG, 3X PER DAY
  7. PARAMAX /00020001/ [Suspect]
     Active Substance: ACETAMINOPHEN
     Dosage: 1000 MG, 3X PER DAY
  8. NALGESIN /00256202/ [Suspect]
     Active Substance: NAPROXEN SODIUM
     Indication: NEURALGIA
     Dosage: 550 MG, 2X PER DAY
     Dates: start: 20180313, end: 20180403

REACTIONS (1)
  - Gastric haemorrhage [Recovered/Resolved]

NARRATIVE: CASE EVENT DATE: 201803
